FAERS Safety Report 4401273-1 (Version None)
Quarter: 2004Q3

REPORT INFORMATION
  Report Type: 
  Country: None (occurrence: None)
  Receive Date: 20040907
  Receipt Date: 20040203
  Transmission Date: 20050211
  Serious: No
  Sender: FDA-Public Use
  Company Number: US-BRISTOL-MYERS SQUIBB COMPANY-12495834

PATIENT
  Age: 72 Year
  Sex: Male
  Weight: 122 kg

DRUGS (1)
  1. COUMADIN [Suspect]
     Indication: CARDIAC FAILURE CONGESTIVE
     Route: 048

REACTIONS (1)
  - ALOPECIA [None]
